FAERS Safety Report 7264043-5 (Version None)
Quarter: 2011Q1

REPORT INFORMATION
  Report Type: 
  Country: None (occurrence: None)
  Receive Date: 20110130
  Receipt Date: 20101217
  Transmission Date: 20110831
  Serious: No
  Sender: FDA-Public Use
  Company Number: US-ABBOTT-10P-163-0692443-00

PATIENT
  Age: 25 Year
  Sex: Male

DRUGS (2)
  1. PROTONIX [Concomitant]
     Indication: GASTROOESOPHAGEAL REFLUX DISEASE
  2. HUMIRA [Suspect]
     Indication: CROHN'S DISEASE
     Dates: start: 20101209

REACTIONS (3)
  - GROIN PAIN [None]
  - FACIAL SPASM [None]
  - MUSCLE SPASMS [None]
